FAERS Safety Report 5118859-1 (Version None)
Quarter: 2006Q3

REPORT INFORMATION
  Report Type: 
  Country: None (occurrence: None)
  Receive Date: 20060927
  Receipt Date: 20060914
  Transmission Date: 20061208
  Serious: Yes (Other)
  Sender: FDA-Public Use
  Company Number: 2006111804

PATIENT
  Age: 80 Year
  Sex: Female

DRUGS (10)
  1. LYRICA [Suspect]
     Indication: RADICULOPATHY
     Dosage: 150 MG (50 MG, 3 IN 1 D)
     Dates: end: 20060909
  2. COUMADIN [Concomitant]
  3. POTASSIUM (POTASSIUM) [Concomitant]
  4. PROCARDIA [Concomitant]
  5. PROTONIX [Concomitant]
  6. DIGOXIN [Concomitant]
  7. PREDNISONE TAB [Concomitant]
  8. LASIX [Concomitant]
  9. LISINOPRIL [Concomitant]
  10. ADVAIR DISKUS 100/50 [Concomitant]

REACTIONS (2)
  - DIZZINESS [None]
  - FALL [None]
